FAERS Safety Report 7005860-6 (Version None)
Quarter: 2010Q3

REPORT INFORMATION
  Report Type: 
  Country: None (occurrence: None)
  Receive Date: 20100921
  Receipt Date: 20100917
  Transmission Date: 20110219
  Serious: Yes (Life-Threatening, Other)
  Sender: FDA-Public Use
  Company Number: GB-WYE-G00628807

PATIENT
  Age: 19 Year
  Sex: Female

DRUGS (14)
  1. TAZOCIN [Suspect]
     Route: 042
  2. ALLOPURINOL [Suspect]
     Route: 048
  3. CASPOFUNGIN ACETATE [Suspect]
     Route: 042
  4. CHLORPHENIRAMINE MALEATE [Suspect]
     Route: 042
  5. CYCLOSPORINE [Suspect]
     Dosage: UNKNOWN
  6. VORICONAZOLE [Suspect]
     Route: 048
  7. KETALAR [Suspect]
     Indication: PAIN
     Route: 042
     Dates: start: 20070921, end: 20070928
  8. MORPHINE [Suspect]
     Dosage: UNKNOWN
     Route: 042
  9. NORETHIDRONE [Suspect]
     Route: 048
  10. OMEPRAZOLE [Suspect]
     Dosage: UNKNOWN
  11. ONDANSETRON [Suspect]
  12. ACETAMINOPHEN [Suspect]
     Dosage: UNKNOWN
     Route: 042
  13. ACYCLOVIR SODIUM [Suspect]
     Dosage: UNKNOWN
  14. ETOPOSIDE [Suspect]
     Dosage: 4650MG (DOSAGE INTERVAL UNSPECIFIED)
     Route: 042
     Dates: start: 20070915, end: 20070915

REACTIONS (4)
  - ALANINE AMINOTRANSFERASE INCREASED [None]
  - BLOOD ALKALINE PHOSPHATASE INCREASED [None]
  - BLOOD BILIRUBIN INCREASED [None]
  - DILATATION INTRAHEPATIC DUCT ACQUIRED [None]
